FAERS Safety Report 4339176-3 (Version None)
Quarter: 2004Q2

REPORT INFORMATION
  Report Type: 
  Country: None (occurrence: None)
  Receive Date: 20040414
  Receipt Date: 20040414
  Transmission Date: 20050107
  Serious: Yes (Death, Life-Threatening, Hospitalization)
  Sender: FDA-Public Use
  Company Number: None

PATIENT
  Age: 50 Year
  Sex: Female
  Weight: 102 kg

DRUGS (18)
  1. GLUCOPHAGE XR [Suspect]
     Indication: DIABETES MELLITUS
     Dosage: 1000 MG PO BID
     Route: 048
  2. ACTOS [Concomitant]
  3. HYDROCHLOROTHIAZIDE [Concomitant]
  4. TARCA [Concomitant]
  5. LEVOPHED [Concomitant]
  6. VERSED [Concomitant]
  7. BUMEX [Concomitant]
  8. DOPAMINE HCL [Concomitant]
  9. ROCEPHIN [Concomitant]
  10. LEVAQUIN [Concomitant]
  11. FLAGYL [Concomitant]
  12. GENTAMICIN [Concomitant]
  13. INSULIN [Concomitant]
  14. PROTONIX [Concomitant]
  15. ALBUMIN NA [Concomitant]
  16. BICARB [Concomitant]
  17. XIGRIS [Concomitant]
  18. IV FLUIDS [Concomitant]

REACTIONS (10)
  - ASTHENIA [None]
  - COUGH [None]
  - DIARRHOEA [None]
  - HAEMODIALYSIS [None]
  - HEADACHE [None]
  - HYPOTENSION [None]
  - LACTIC ACIDOSIS [None]
  - METABOLIC ACIDOSIS [None]
  - RENAL FAILURE [None]
  - SEPTIC SHOCK [None]
